FAERS Safety Report 7502219-X (Version None)
Quarter: 2011Q2

REPORT INFORMATION
  Report Type: 
  Country: None (occurrence: None)
  Receive Date: 20110523
  Receipt Date: 20110523
  Transmission Date: 20111010
  Serious: Yes (Hospitalization)
  Sender: FDA-Public Use
  Company Number: None

PATIENT
  Age: 35 Year
  Sex: Female
  Weight: 64.86 kg

DRUGS (1)
  1. NORGESTIMATE AND ETHINYL ESTRADIOL [Suspect]
     Indication: CONTRACEPTION
     Dosage: 1 TAB UD PO
     Route: 048
     Dates: start: 20110228, end: 20110329

REACTIONS (5)
  - RASH PRURITIC [None]
  - RASH MACULAR [None]
  - HEADACHE [None]
  - PAIN [None]
  - SWELLING [None]
